FAERS Safety Report 14798154 (Version 1)
Quarter: 2018Q2

REPORT INFORMATION
  Report Type: Report from Study
  Country: None (occurrence: NZ)
  Receive Date: 20180424
  Receipt Date: 20180424
  Transmission Date: 20180711
  Serious: Yes (Other)
  Sender: FDA-Public Use
  Company Number: NZ-ABBVIE-18K-118-2324793-00

PATIENT
  Sex: Female

DRUGS (1)
  1. HUMIRA [Suspect]
     Active Substance: ADALIMUMAB
     Indication: PSORIASIS
     Route: 058

REACTIONS (5)
  - Skin haemorrhage [Unknown]
  - Hyperhidrosis [Unknown]
  - Glaucoma [Unknown]
  - Haematuria [Unknown]
  - Productive cough [Unknown]
